FAERS Safety Report 15882266 (Version 3)
Quarter: 2019Q1

REPORT INFORMATION
  Report Type: Spontaneous
  Country: GB (occurrence: GB)
  Receive Date: 20190128
  Receipt Date: 20190311
  Transmission Date: 20190417
  Serious: Yes (Death, Life-Threatening, Other)
  Sender: FDA-Public Use
  Company Number: GB-CONCORDIA PHARMACEUTICALS INC.-E2B_00018448

PATIENT
  Age: 80 Year
  Sex: Male

DRUGS (5)
  1. PREDNISOLONE. [Suspect]
     Active Substance: PREDNISOLONE
     Indication: OPTIC NEURITIS
     Dosage: REINSTITUTION OF STEROIDS
     Route: 048
  2. CYCLOPHOSPHAMIDE. [Suspect]
     Active Substance: CYCLOPHOSPHAMIDE
     Indication: OPTIC NEURITIS
     Dosage: PULSED
     Route: 042
  3. SALBUTAMOL [Concomitant]
     Active Substance: ALBUTEROL
     Indication: ASTHMA
     Dosage: SALBUTAMOL INHALER
     Route: 055
  4. PREDNISOLONE. [Suspect]
     Active Substance: PREDNISOLONE
  5. METHYLPREDNISOLONE. [Suspect]
     Active Substance: METHYLPREDNISOLONE
     Indication: OPTIC NEURITIS
     Dosage: PULSED

REACTIONS (10)
  - Blindness [Unknown]
  - Cognitive disorder [Unknown]
  - Optic neuropathy [Fatal]
  - Dysarthria [Unknown]
  - Aspergillus infection [Fatal]
  - Ataxia [Unknown]
  - Cerebral aspergillosis [Fatal]
  - Urinary incontinence [Unknown]
  - Paraesthesia [Unknown]
  - Ophthalmoplegia [Unknown]
